FAERS Safety Report 8486123-9 (Version None)
Quarter: 2012Q3

REPORT INFORMATION
  Report Type: 
  Country: None (occurrence: None)
  Receive Date: 20120703
  Receipt Date: 20120626
  Transmission Date: 20120928
  Serious: Yes (Death)
  Sender: FDA-Public Use
  Company Number: FR-BAXTER-2012BAX009627

PATIENT
  Sex: Male

DRUGS (5)
  1. CYCLOPHOSPHAMIDE [Suspect]
     Indication: LYMPHOMA
     Route: 042
     Dates: start: 20110615, end: 20110705
  2. CYTARABINE [Suspect]
     Indication: LYMPHOMA
     Dates: start: 20110615, end: 20110707
  3. METHOTREXATE [Suspect]
     Indication: LYMPHOMA
     Route: 042
     Dates: start: 20110614
  4. METHOTREXATE [Suspect]
     Route: 042
     Dates: start: 20110702
  5. TENORMIN [Concomitant]
     Indication: HYPERTENSION

REACTIONS (4)
  - CYTOLYTIC HEPATITIS [None]
  - ACUTE RESPIRATORY DISTRESS SYNDROME [None]
  - DERMATITIS BULLOUS [None]
  - BONE MARROW FAILURE [None]
